FAERS Safety Report 4382008-8 (Version None)
Quarter: 2004Q2

REPORT INFORMATION
  Report Type: 
  Country: None (occurrence: None)
  Receive Date: 20040615
  Receipt Date: 20040610
  Transmission Date: 20050107
  Serious: Yes (Death, Hospitalization)
  Sender: FDA-Public Use
  Company Number: F01200400874

PATIENT
  Age: 58 Year
  Sex: Male

DRUGS (2)
  1. (OXALIPLATIN) [Suspect]
     Indication: COLORECTAL CANCER
     Dosage: INTRAVENOUS NOS
     Route: 042
     Dates: start: 20040330, end: 20040330
  2. (CAPECITABINE) - TABLET [Suspect]
     Dosage: ORAL
     Route: 048
     Dates: start: 20040330, end: 20040412

REACTIONS (6)
  - ATRIAL FIBRILLATION [None]
  - COLORECTAL CANCER METASTATIC [None]
  - EMBOLISM [None]
  - HEART RATE INCREASED [None]
  - MYOCARDIAL INFARCTION [None]
  - PYREXIA [None]
